FAERS Safety Report 12161891 (Version 1)
Quarter: 2016Q1

REPORT INFORMATION
  Report Type: Spontaneous
  Country: ES (occurrence: None)
  Receive Date: 20160307
  Receipt Date: 20160307
  Transmission Date: 20160526
  Serious: Yes (Disabling)
  Sender: FDA-Public Use
  Company Number: ES-ALSI-201600039

PATIENT
  Age: 51 Year
  Sex: Female

DRUGS (1)
  1. OXIGENO MEDICINAL AIR LIQ MEDICINAL 200 BAR 99.5% V/V GAS PARA INH OXYGEN [Suspect]
     Active Substance: OXYGEN
     Route: 055
     Dates: start: 20160210, end: 20160210

REACTIONS (4)
  - Foot fracture [None]
  - Device connection issue [None]
  - Limb crushing injury [None]
  - Product quality issue [None]

NARRATIVE: CASE EVENT DATE: 20160210
